FAERS Safety Report 7513317-9 (Version None)
Quarter: 2011Q2

REPORT INFORMATION
  Report Type: 
  Country: None (occurrence: None)
  Receive Date: 20110525
  Receipt Date: 20110525
  Transmission Date: 20111010
  Serious: No
  Sender: FDA-Public Use
  Company Number: None

PATIENT
  Sex: Male
  Weight: 79.3795 kg

DRUGS (1)
  1. TAMSULOSIN HCL [Suspect]
     Indication: BENIGN PROSTATIC HYPERPLASIA
     Dosage: 0.4 MG ONE PER DAY MOUTH
     Route: 048
     Dates: start: 20110413

REACTIONS (5)
  - MIDDLE INSOMNIA [None]
  - NAUSEA [None]
  - EYE PAIN [None]
  - GINGIVAL PAIN [None]
  - DRY MOUTH [None]
